FAERS Safety Report 9264506 (Version 3)
Quarter: 2013Q3

REPORT INFORMATION
  Report Type: Report from Study
  Country: JP (occurrence: JP)
  Receive Date: 20130501
  Receipt Date: 20130826
  Transmission Date: 20140515
  Serious: Yes (Death)
  Sender: FDA-Public Use
  Company Number: JP-ROCHE-1218882

PATIENT
  Age: 89 Year
  Sex: Male

DRUGS (2)
  1. METHOXY POLYETHYLENE GLYCOL-EPOETIN BETA [Suspect]
     Indication: NEPHROGENIC ANAEMIA
     Route: 058
     Dates: start: 20121003, end: 20130401
  2. ARTIST [Concomitant]
     Route: 048
     Dates: end: 20130410

REACTIONS (1)
  - Aortic aneurysm rupture [Fatal]
